FAERS Safety Report 7441984-7 (Version None)
Quarter: 2011Q2

REPORT INFORMATION
  Report Type: 
  Country: None (occurrence: None)
  Receive Date: 20110428
  Receipt Date: 20100521
  Transmission Date: 20111010
  Serious: No
  Sender: FDA-Public Use
  Company Number: US-ASTRAZENECA-2010SE23452

PATIENT
  Age: 35 Year
  Sex: Female

DRUGS (2)
  1. ZOMIG [Suspect]
     Indication: MIGRAINE
     Route: 048
     Dates: start: 20100501
  2. RYTHMOL SR [Concomitant]
     Indication: ATRIAL TACHYCARDIA

REACTIONS (2)
  - ATRIAL TACHYCARDIA [None]
  - FEELING ABNORMAL [None]
